FAERS Safety Report 6279929-8 (Version None)
Quarter: 2009Q3

REPORT INFORMATION
  Report Type: 
  Country: None (occurrence: None)
  Receive Date: 20090723
  Receipt Date: 20090304
  Transmission Date: 20100115
  Serious: No
  Sender: FDA-Public Use
  Company Number: US-AMGEN-KDL336927

PATIENT
  Sex: Female
  Weight: 78.5 kg

DRUGS (2)
  1. PROCRIT [Suspect]
     Indication: RENAL FAILURE CHRONIC
     Route: 058
     Dates: start: 20080123, end: 20090212
  2. UNSPECIFIED MEDICATION [Concomitant]

REACTIONS (7)
  - DIARRHOEA [None]
  - DYSPNOEA [None]
  - EATING DISORDER [None]
  - INFLUENZA LIKE ILLNESS [None]
  - NAUSEA [None]
  - PYREXIA [None]
  - VOMITING [None]
